FAERS Safety Report 7299555-1 (Version None)
Quarter: 2011Q1

REPORT INFORMATION
  Report Type: 
  Country: None (occurrence: None)
  Receive Date: 20110217
  Receipt Date: 20110214
  Transmission Date: 20110831
  Serious: Yes (Other)
  Sender: FDA-Public Use
  Company Number: JP-PFIZER INC-2011017986

PATIENT
  Age: 63 Year
  Sex: Male
  Weight: 65 kg

DRUGS (14)
  1. LASIX [Concomitant]
     Dosage: 20 MG, 1X/DAY
     Route: 048
     Dates: end: 20101207
  2. ALOSITOL [Concomitant]
     Dosage: 10 MG, 2X/DAY
     Route: 048
  3. SELBEX [Concomitant]
     Indication: PROPHYLAXIS
     Dosage: 50 MG, 3X/DAY
     Route: 048
  4. FERRUM ^GREEN CROSS^ [Concomitant]
     Dosage: 100 MG, 1X/DAY
     Route: 048
  5. TEMSIROLIMUS [Suspect]
     Dosage: 25 MG, WEEKLY
     Route: 041
     Dates: start: 20101201
  6. OMEPRAL [Concomitant]
     Dosage: 10 MG, 1X/DAY
     Route: 048
  7. LOXONIN [Concomitant]
     Indication: RENAL CELL CARCINOMA
     Dosage: 60 MG, 3X/DAY
     Route: 048
  8. TAMSULOSIN HYDROCHLORIDE [Concomitant]
     Dosage: 0.2 MG, 1X/DAY
     Route: 048
     Dates: start: 20100715
  9. OXYCONTIN [Concomitant]
     Indication: RENAL CELL CARCINOMA
     Dosage: 5 MG, 2X/DAY
     Route: 048
  10. TEMSIROLIMUS [Suspect]
     Indication: RENAL CELL CARCINOMA
     Dosage: 25 MG, WEEKLY
     Route: 041
     Dates: start: 20101115, end: 20101208
  11. TEMSIROLIMUS [Suspect]
     Dosage: 25 MG, WEEKLY
     Route: 041
     Dates: start: 20101208
  12. BLOPRESS [Concomitant]
     Dosage: 4 MG, 2X/DAY
     Route: 048
  13. CALBLOCK [Concomitant]
     Dosage: 16 MG, 1X/DAY
     Route: 048
     Dates: end: 20101125
  14. TEMSIROLIMUS [Suspect]
     Dosage: 25 MG, WEEKLY
     Route: 041
     Dates: start: 20101124

REACTIONS (1)
  - STEVENS-JOHNSON SYNDROME [None]
